FAERS Safety Report 7731883-5 (Version None)
Quarter: 2011Q3

REPORT INFORMATION
  Report Type: 
  Country: None (occurrence: None)
  Receive Date: 20110906
  Receipt Date: 20110712
  Transmission Date: 20111222
  Serious: No
  Sender: FDA-Public Use
  Company Number: US-AMGEN-USASP2011035435

PATIENT
  Age: 80 Year
  Sex: Female

DRUGS (13)
  1. ZYRTEC [Concomitant]
  2. ENABLEX                            /01760401/ [Concomitant]
  3. CALTRATE PLUS-D [Concomitant]
  4. PROLIA [Suspect]
     Indication: OSTEOPOROSIS POSTMENOPAUSAL
     Dosage: 60 MG, Q6MO
     Dates: start: 20101101
  5. HYDROXYCHLOROQUINE [Concomitant]
  6. VITAMINS                           /00067501/ [Concomitant]
  7. LYRICA [Concomitant]
  8. NEXIUM                             /01479303/ [Concomitant]
  9. MULTI-VITAMINS [Concomitant]
  10. FLUTICASONE                        /00972202/ [Concomitant]
  11. ADVAIR DISKUS 100/50 [Concomitant]
  12. FOLIC ACID [Concomitant]
  13. CARAFATE [Concomitant]

REACTIONS (5)
  - NAUSEA [None]
  - DIARRHOEA [None]
  - MALAISE [None]
  - GASTROENTERITIS VIRAL [None]
  - VOMITING [None]
